FAERS Safety Report 4457661-0 (Version None)
Quarter: 2004Q3

REPORT INFORMATION
  Report Type: 
  Country: None (occurrence: None)
  Receive Date: 20040922
  Receipt Date: 20040813
  Transmission Date: 20050211
  Serious: Yes (Death, Other)
  Sender: FDA-Public Use
  Company Number: 2004037150

PATIENT
  Age: 26 Year
  Sex: Male

DRUGS (5)
  1. DIPHENHYDRAMINE HCL [Suspect]
     Indication: INTENTIONAL OVERDOSE
  2. VENLAFAXINE HCL [Suspect]
     Indication: DEPRESSION
     Dosage: 2 MONTH SUPPLY, ORAL
     Route: 048
     Dates: start: 20040323, end: 20040323
  3. METHYLENEDIOXYMETHAMPHETAMINE (METHYLENEDIOXYMETHAMPHETAMINE) [Suspect]
     Indication: INTENTIONAL OVERDOSE
     Dates: start: 20040323, end: 20040323
  4. PROMETHAZINE [Suspect]
     Indication: INTENTIONAL OVERDOSE
     Dates: start: 20040323, end: 20040323
  5. CITALOPRAM [Concomitant]

REACTIONS (4)
  - COMPLETED SUICIDE [None]
  - MULTIPLE DRUG OVERDOSE INTENTIONAL [None]
  - SUICIDAL IDEATION [None]
  - TOXICOLOGIC TEST ABNORMAL [None]
